FAERS Safety Report 5505175-9 (Version None)
Quarter: 2007Q4

REPORT INFORMATION
  Report Type: 
  Country: None (occurrence: None)
  Receive Date: 20071102
  Receipt Date: 20071026
  Transmission Date: 20080405
  Serious: Yes (Hospitalization)
  Sender: FDA-Public Use
  Company Number: PHRM2007FR02352

PATIENT
  Age: 73 Year
  Sex: Male
  Weight: 68 kg

DRUGS (2)
  1. RECLAST [Suspect]
     Indication: OSTEITIS DEFORMANS
     Dosage: 5 MG, ONCE/SINGLE
     Route: 042
     Dates: start: 20070719, end: 20070719
  2. ANTIBIOTICS [Suspect]

REACTIONS (4)
  - CHILLS [None]
  - COUGH [None]
  - EPIDIDYMITIS [None]
  - PYREXIA [None]
